FAERS Safety Report 19222958 (Version 4)
Quarter: 2021Q3

REPORT INFORMATION
  Report Type: Spontaneous
  Country: US (occurrence: US)
  Receive Date: 20210505
  Receipt Date: 20210729
  Transmission Date: 20211014
  Serious: Yes (Hospitalization, Other)
  Sender: FDA-Public Use
  Company Number: US-009507513-2104USA008399

PATIENT
  Age: 66 Year
  Sex: Female
  Weight: 46.5 kg

DRUGS (6)
  1. MAGNESIUM OXIDE. [Concomitant]
     Active Substance: MAGNESIUM OXIDE
  2. VITAMINE D [Concomitant]
     Active Substance: CHOLECALCIFEROL
  3. KEYTRUDA [Suspect]
     Active Substance: PEMBROLIZUMAB
     Indication: NON-SMALL CELL LUNG CANCER STAGE IV
     Dosage: 200 MILLIGRAM, EVERY 3 WEEKS
     Route: 042
     Dates: start: 20190205, end: 20210309
  4. KEYTRUDA [Suspect]
     Active Substance: PEMBROLIZUMAB
     Dosage: UNK, Q3WIV
     Route: 042
     Dates: start: 2021
  5. PROTONIX [OMEPRAZOLE] [Concomitant]
     Active Substance: OMEPRAZOLE
  6. KEYTRUDA [Suspect]
     Active Substance: PEMBROLIZUMAB
     Dosage: 400MG/ EVERY 6 WEEKS, INFUSION
     Route: 042
     Dates: start: 20210309, end: 20210420

REACTIONS (8)
  - Immune-mediated enterocolitis [Unknown]
  - Constipation [Not Recovered/Not Resolved]
  - Product use issue [Unknown]
  - Haematochezia [Not Recovered/Not Resolved]
  - Haematemesis [Not Recovered/Not Resolved]
  - Pus in stool [Not Recovered/Not Resolved]
  - Abdominal pain upper [Not Recovered/Not Resolved]
  - Adverse event [Not Recovered/Not Resolved]

NARRATIVE: CASE EVENT DATE: 20210309
